FAERS Safety Report 8611231-9 (Version None)
Quarter: 2012Q3

REPORT INFORMATION
  Report Type: 
  Country: None (occurrence: None)
  Receive Date: 20120822
  Receipt Date: 20120814
  Transmission Date: 20120928
  Serious: Yes (Hospitalization)
  Sender: FDA-Public Use
  Company Number: GB-PFIZER INC-2012199354

PATIENT
  Age: 65 Year
  Sex: Male

DRUGS (5)
  1. TIGECYCLINE [Suspect]
     Indication: ABDOMINAL SEPSIS
     Dosage: UNK
  2. OMEPRAZOLE [Interacting]
     Dosage: 40 MG, 1X/DAY
     Route: 042
     Dates: start: 20110406
  3. GENTAMICIN [Concomitant]
     Indication: ABDOMINAL SEPSIS
  4. FLUCONAZOLE [Concomitant]
     Indication: ABDOMINAL SEPSIS
     Route: 048
  5. OMEPRAZOLE [Interacting]
     Dosage: 40 MG, 2X/DAY
     Route: 042
     Dates: start: 20110418

REACTIONS (2)
  - DRUG INTERACTION [None]
  - DRUG RESISTANCE [None]
